FAERS Safety Report 7827781-9 (Version None)
Quarter: 2011Q4

REPORT INFORMATION
  Report Type: 
  Country: None (occurrence: None)
  Receive Date: 20111017
  Receipt Date: 20111007
  Transmission Date: 20120403
  Serious: Yes (Other)
  Sender: FDA-Public Use
  Company Number: AUR-APL-2011-05386

PATIENT
  Age: 76 Year
  Sex: Female
  Weight: 74.8435 kg

DRUGS (8)
  1. LIPITOR [Concomitant]
  2. FUROSEMIDE [Concomitant]
  3. SINGULAIR [Concomitant]
  4. ALENDRONATE SODIUM [Suspect]
     Indication: OSTEOPOROSIS
     Dosage: (70 MG,1 WK),ORAL
     Route: 048
     Dates: start: 20090701, end: 20111011
  5. GLUCOTROL [Concomitant]
  6. CALAN [Concomitant]
  7. ALBUEEROL (SALBUTAMOL) [Concomitant]
  8. METFORMIN HCL [Concomitant]

REACTIONS (3)
  - RASH [None]
  - BURNING SENSATION [None]
  - SKIN ULCER [None]
